FAERS Safety Report 17884172 (Version 1)
Quarter: 2020Q2

REPORT INFORMATION
  Report Type: Report from Study
  Country: IT (occurrence: IT)
  Receive Date: 20200611
  Receipt Date: 20200611
  Transmission Date: 20200714
  Serious: Yes (Hospitalization)
  Sender: FDA-Public Use
  Company Number: IT-ACCORD-184889

PATIENT
  Age: 54 Year
  Sex: Female

DRUGS (6)
  1. ISENTRESS [Concomitant]
     Active Substance: RALTEGRAVIR POTASSIUM
  2. ESCITALOPRAM [Suspect]
     Active Substance: ESCITALOPRAM OXALATE
     Dates: start: 20191223, end: 20191223
  3. MIRTAZAPINE. [Concomitant]
     Active Substance: MIRTAZAPINE
  4. REYATAZ [Concomitant]
     Active Substance: ATAZANAVIR SULFATE
  5. LORAZEPAM. [Suspect]
     Active Substance: LORAZEPAM
     Dates: start: 20191223, end: 20191223
  6. SONGAR [Concomitant]
     Active Substance: TRIAZOLAM

REACTIONS (3)
  - Sopor [Unknown]
  - Intentional self-injury [Unknown]
  - Drug abuse [Unknown]

NARRATIVE: CASE EVENT DATE: 20191223
